FAERS Safety Report 9795622 (Version 2)
Quarter: 2014Q1

REPORT INFORMATION
  Report Type: Spontaneous
  Country: US (occurrence: US)
  Receive Date: 20140103
  Receipt Date: 20140128
  Transmission Date: 20141002
  Serious: No
  Sender: FDA-Public Use
  Company Number: US-PFIZER INC-2013374089

PATIENT
  Sex: Female

DRUGS (6)
  1. FLAGYL [Suspect]
     Dosage: UNK
  2. ZOSYN [Suspect]
     Dosage: UNK
  3. CIPRO [Suspect]
     Dosage: UNK
  4. CODEINE [Suspect]
     Dosage: UNK
  5. PERCODAN [Suspect]
     Dosage: UNK
  6. SOMA [Suspect]
     Dosage: UNK

REACTIONS (1)
  - Drug hypersensitivity [Unknown]
